FAERS Safety Report 10155576 (Version 2)
Quarter: 2014Q2

REPORT INFORMATION
  Report Type: Spontaneous
  Country: US (occurrence: US)
  Receive Date: 20140506
  Receipt Date: 20140623
  Transmission Date: 20141212
  Serious: No
  Sender: FDA-Public Use
  Company Number: US-B.I. PHARMACEUTICALS,INC./RIDGEFIELD-2014-BI-19048BP

PATIENT
  Age: 74 Year
  Sex: Male

DRUGS (5)
  1. COMBIVENT [Suspect]
     Indication: PRODUCT USED FOR UNKNOWN INDICATION
     Dosage: STRENGTH: 20 MCG / 100 MCG; DAILY DOSE: 80 MCG / 400 MCG
     Route: 055
     Dates: start: 201401
  2. CLONAZEPAM [Concomitant]
     Indication: NERVOUS SYSTEM DISORDER
     Dosage: 0.5 MG
     Route: 048
     Dates: start: 2012
  3. SIMVASTATIN [Concomitant]
     Indication: BLOOD CHOLESTEROL INCREASED
     Dosage: 10 MG
     Route: 048
     Dates: start: 2010
  4. LISINOPRIL/HYDROCHLOROTHIAZIDE [Concomitant]
     Indication: HYPERTENSION
     Dosage: STRENTH: 10 MG /12.5 MG DAILY DOSE: 10 MG /12.5 MG
     Route: 048
     Dates: start: 2010
  5. ASPIRIN [Concomitant]
     Dosage: 81 MG
     Route: 048
     Dates: start: 2004

REACTIONS (3)
  - Pulmonary congestion [Not Recovered/Not Resolved]
  - Cough [Not Recovered/Not Resolved]
  - Drug ineffective [Not Recovered/Not Resolved]
